FAERS Safety Report 8571530 (Version 2)
Quarter: 2014Q1

REPORT INFORMATION
  Report Type: Spontaneous
  Country: US (occurrence: None)
  Receive Date: 20120323
  Receipt Date: 20140306
  Transmission Date: 20141002
  Serious: Yes (Hospitalization, Other)
  Sender: FDA-Public Use
  Company Number: 163-21880-11040805

PATIENT
  Age: 50 Year
  Sex: Female

DRUGS (3)
  1. REVLIMID [Suspect]
     Indication: PLASMA CELL MYELOMA
     Dosage: 15 MG, DAILY FOR 21 DAYS, PO
     Route: 048
     Dates: start: 20110316, end: 201106
  2. STERDOID (OTHER THERAPETUIC PRODUCTS)(UKNOWN) [Concomitant]
  3. DEXAMETHASONE(DEXAMETHASONE)(UKNOWN) [Concomitant]

REACTIONS (3)
  - Rash pustular [None]
  - Clostridium difficile infection [None]
  - Staphylococcal infection [None]
